FAERS Safety Report 25011418 (Version 1)
Quarter: 2025Q1

REPORT INFORMATION
  Report Type: Spontaneous
  Country: US (occurrence: US)
  Receive Date: 20250226
  Receipt Date: 20250226
  Transmission Date: 20250408
  Serious: No
  Sender: ROCHE
  Company Number: US-ROCHE-10000212395

PATIENT
  Age: 59 Year
  Sex: Female
  Weight: 69.85 kg

DRUGS (2)
  1. XOLAIR PFS [Suspect]
     Active Substance: OMALIZUMAB
     Indication: Idiopathic urticaria
     Route: 058
  2. XOLAIR PFS [Suspect]
     Active Substance: OMALIZUMAB

REACTIONS (6)
  - Fluid retention [Unknown]
  - Weight increased [Unknown]
  - Oedema peripheral [Unknown]
  - Fungal infection [Unknown]
  - Memory impairment [Unknown]
  - Product dose omission issue [Unknown]
